FAERS Safety Report 10540226 (Version 1)
Quarter: 2014Q4

REPORT INFORMATION
  Report Type: Spontaneous
  Country: US (occurrence: None)
  Receive Date: 20141023
  Receipt Date: 20141023
  Transmission Date: 20150529
  Serious: No
  Sender: FDA-Public Use
  Company Number: None

PATIENT
  Age: 64 Year
  Sex: Female

DRUGS (3)
  1. NEXIUM [Concomitant]
     Active Substance: ESOMEPRAZOLE MAGNESIUM
  2. POLY-IRON 150 MG POLYSACCRIDE IRON CONTRACT PHARMACAL CORPORATION [Suspect]
     Active Substance: DIETARY SUPPLEMENT
     Indication: ANAEMIA
     Dosage: 3 CAPSULES DAY ORAL
     Route: 048
     Dates: start: 201310, end: 201404
  3. FERRIC POLYSACCHARIDE COMPLEX [Suspect]
     Active Substance: FERRIC POLYSACCHARIDE COMPLEX

REACTIONS (4)
  - Urticaria [None]
  - Lip disorder [None]
  - Paraesthesia [None]
  - Nasal dryness [None]

NARRATIVE: CASE EVENT DATE: 201310
